FAERS Safety Report 8266932-1 (Version None)
Quarter: 2012Q2

REPORT INFORMATION
  Report Type: 
  Country: None (occurrence: None)
  Receive Date: 20120404
  Receipt Date: 20120404
  Transmission Date: 20120825
  Serious: Yes (Hospitalization)
  Sender: FDA-Public Use
  Company Number: None

PATIENT
  Age: 49 Year
  Sex: Female
  Weight: 114.5 kg

DRUGS (16)
  1. ASPIRIN [Concomitant]
  2. LEVOXYL [Concomitant]
  3. LOVAZA [Concomitant]
  4. GEMFIBROZIL [Suspect]
     Indication: DYSLIPIDAEMIA
     Dosage: 600MG BID PO CHRONIC
     Route: 048
  5. LANTUS [Concomitant]
  6. CLONIDINE [Concomitant]
  7. PHENERGAN HCL [Concomitant]
  8. COMBIVENT [Concomitant]
  9. FLEXERIL [Concomitant]
  10. WELCHOL [Concomitant]
  11. EPOGEN [Concomitant]
  12. CYMBALTA [Concomitant]
  13. LASIX [Concomitant]
  14. NOVOLOG [Concomitant]
  15. LOVASTATIN [Suspect]
     Indication: DYSLIPIDAEMIA
     Dosage: 80MG QHS PO CHRONIC
     Route: 048
  16. TOPROL-XL [Concomitant]

REACTIONS (2)
  - RHABDOMYOLYSIS [None]
  - RENAL FAILURE ACUTE [None]
